FAERS Safety Report 10557517 (Version 2)
Quarter: 2014Q4

REPORT INFORMATION
  Report Type: Spontaneous
  Country: CN (occurrence: CN)
  Receive Date: 20141031
  Receipt Date: 20141110
  Transmission Date: 20150529
  Serious: Yes (Hospitalization, Other)
  Sender: FDA-Public Use
  Company Number: CN-JNJFOC-20141016973

PATIENT
  Age: 6 Year
  Sex: Male
  Weight: 20 kg

DRUGS (3)
  1. TYLENOL [Suspect]
     Active Substance: ACETAMINOPHEN
     Indication: PYREXIA
     Route: 048
     Dates: start: 20140410, end: 20140412
  2. AMOXICILLIN. [Suspect]
     Active Substance: AMOXICILLIN
     Indication: UPPER RESPIRATORY TRACT INFECTION
     Route: 048
     Dates: start: 20140410, end: 20140412
  3. OTHER THERAPEUTIC MEDICATIONS [Suspect]
     Active Substance: UNSPECIFIED INGREDIENT
     Indication: UPPER RESPIRATORY TRACT INFECTION
     Route: 048
     Dates: start: 20140410, end: 20140412

REACTIONS (5)
  - Product quality issue [None]
  - Myalgia [Recovering/Resolving]
  - Fatigue [Unknown]
  - Leukopenia [Recovered/Resolved]
  - Myocardial necrosis marker increased [Unknown]

NARRATIVE: CASE EVENT DATE: 20140412
